FAERS Safety Report 6558952-X (Version None)
Quarter: 2010Q1

REPORT INFORMATION
  Report Type: 
  Country: None (occurrence: None)
  Receive Date: 20100129
  Receipt Date: 20100121
  Transmission Date: 20100710
  Serious: Yes (Hospitalization, Other)
  Sender: FDA-Public Use
  Company Number: US-ELI_LILLY_AND_COMPANY-US201001004377

PATIENT
  Sex: Male
  Weight: 158.73 kg

DRUGS (14)
  1. BYETTA [Suspect]
     Indication: TYPE 2 DIABETES MELLITUS
     Dosage: 5 UG, 2/D
     Route: 058
     Dates: start: 20050101, end: 20050101
  2. BYETTA [Suspect]
     Dosage: 10 UG, 2/D
     Route: 058
     Dates: start: 20050101, end: 20060101
  3. BYETTA [Suspect]
     Dosage: 10 UG, 2/D
     Route: 058
     Dates: start: 20060101, end: 20060101
  4. BYETTA [Suspect]
     Dosage: 10 UG, 2/D
     Route: 058
     Dates: start: 20060101, end: 20070101
  5. BYETTA [Suspect]
     Dosage: 10 UG, 2/D
     Route: 058
     Dates: start: 20070101, end: 20090201
  6. BYETTA [Suspect]
     Dosage: 10 UG, 2/D
     Route: 058
     Dates: start: 20090201
  7. GLUCOTROL [Concomitant]
     Dosage: 5 MG, 2/D
     Dates: start: 20050101
  8. IBUPROFEN [Concomitant]
     Indication: BACK PAIN
     Dosage: UNK, AS NEEDED
  9. ACETAMINOPHEN [Concomitant]
     Indication: BACK PAIN
     Dosage: UNK, AS NEEDED
  10. FUROSEMIDE [Concomitant]
     Dosage: 20 MG, DAILY (1/D)
     Dates: start: 20050101
  11. METOPROLOL [Concomitant]
     Dosage: 25 MG, 2/D
  12. RAMIPRIL [Concomitant]
     Dosage: 10 MG, 2/D
  13. POTASSIUM CHLORIDE [Concomitant]
     Dosage: 10 MEQ, DAILY (1/D)
  14. MICARDIS [Concomitant]
     Dosage: 40 MG, DAILY (1/D)
     Route: 048

REACTIONS (10)
  - ABDOMINAL PAIN [None]
  - BLOOD GLUCOSE DECREASED [None]
  - BLOOD GLUCOSE INCREASED [None]
  - CELLULITIS [None]
  - DYSPNOEA EXERTIONAL [None]
  - ERYTHEMA [None]
  - OEDEMA PERIPHERAL [None]
  - PAIN IN EXTREMITY [None]
  - PANCREATITIS [None]
  - WEIGHT FLUCTUATION [None]
